FAERS Safety Report 19464173 (Version 2)
Quarter: 2021Q2

REPORT INFORMATION
  Report Type: Spontaneous
  Country: US (occurrence: US)
  Receive Date: 20210625
  Receipt Date: 20210626
  Transmission Date: 20210717
  Serious: Yes (Other)
  Sender: FDA-Public Use
  Company Number: US-ENDO PHARMACEUTICALS INC-2021-003015

PATIENT
  Age: 60 Year
  Sex: Female

DRUGS (4)
  1. ZANTAC [Suspect]
     Active Substance: RANITIDINE HYDROCHLORIDE
     Indication: PEPTIC ULCER
     Dosage: 150 MG, DAILY
     Route: 065
     Dates: start: 198001, end: 202001
  2. RANITIDINE. [Suspect]
     Active Substance: RANITIDINE
     Indication: PEPTIC ULCER
     Dosage: UNK UNK, DAILY
     Route: 065
     Dates: start: 200401, end: 202001
  3. ZANTAC [Suspect]
     Active Substance: RANITIDINE HYDROCHLORIDE
     Indication: PEPTIC ULCER
     Dosage: 150 MG, DAILY
     Route: 065
     Dates: start: 198001, end: 202001
  4. RANITIDINE HYDROCHLORIDE. [Suspect]
     Active Substance: RANITIDINE HYDROCHLORIDE
     Indication: PEPTIC ULCER
     Dosage: 150 MG, DAILY
     Route: 065
     Dates: start: 200401, end: 202001

REACTIONS (1)
  - Bladder cancer [Recovered/Resolved]

NARRATIVE: CASE EVENT DATE: 20200806
